FAERS Safety Report 14325541 (Version 2)
Quarter: 2018Q1

REPORT INFORMATION
  Report Type: Report from Study
  Country: None (occurrence: US)
  Receive Date: 20171226
  Receipt Date: 20180105
  Transmission Date: 20180509
  Serious: Yes (Death)
  Sender: FDA-Public Use
  Company Number: US-ABBVIE-17P-163-2204539-00

PATIENT
  Age: 70 Year
  Sex: Female
  Weight: 89.44 kg

DRUGS (1)
  1. MAVYRET [Suspect]
     Active Substance: GLECAPREVIR\PIBRENTASVIR
     Indication: HEPATITIS C
     Route: 048

REACTIONS (5)
  - Feeding disorder [Fatal]
  - Fluid intake reduced [Fatal]
  - Pneumonia [Fatal]
  - Cardiac failure congestive [Fatal]
  - Thirst [Fatal]

NARRATIVE: CASE EVENT DATE: 201712
